FAERS Safety Report 22979578 (Version 2)
Quarter: 2024Q4

REPORT INFORMATION
  Report Type: Spontaneous
  Country: US (occurrence: US)
  Receive Date: 20230925
  Receipt Date: 20241217
  Transmission Date: 20250115
  Serious: No
  Sender: PFIZER
  Company Number: US-PFIZER INC-PV202300115028

PATIENT
  Age: 25 Year
  Sex: Male

DRUGS (1)
  1. CIBINQO [Suspect]
     Active Substance: ABROCITINIB
     Dosage: 200 MG

REACTIONS (3)
  - Staphylococcal skin infection [Not Recovered/Not Resolved]
  - Skin disorder [Unknown]
  - Skin irritation [Unknown]
